APPROVED DRUG PRODUCT: HYDROCHLOROTHIAZIDE
Active Ingredient: HYDROCHLOROTHIAZIDE
Strength: 50MG
Dosage Form/Route: TABLET;ORAL
Application: A087752 | Product #001
Applicant: USL PHARMA INC
Approved: Apr 19, 1982 | RLD: No | RS: No | Type: DISCN